FAERS Safety Report 4633689-2 (Version None)
Quarter: 2005Q2

REPORT INFORMATION
  Report Type: 
  Country: None (occurrence: None)
  Receive Date: 20050325
  Receipt Date: 20041227
  Transmission Date: 20051028
  Serious: No
  Sender: FDA-Public Use
  Company Number: USA041286916

PATIENT
  Age: 69 Year
  Sex: Female

DRUGS (4)
  1. FORTEO [Suspect]
     Indication: FRACTURE
     Dosage: 20 UG/1 DAY
     Dates: start: 20040602
  2. RALOXIFENE HCL [Suspect]
     Dosage: 60 MG/1 DAY
     Dates: start: 19940101
  3. MIACALCIN [Concomitant]
  4. FOSAMAX [Concomitant]

REACTIONS (7)
  - BODY HEIGHT DECREASED [None]
  - CATARACT [None]
  - FALL [None]
  - HEADACHE [None]
  - SPINAL FRACTURE [None]
  - THORACIC VERTEBRAL FRACTURE [None]
  - VISUAL ACUITY REDUCED [None]
